FAERS Safety Report 23977621 (Version 1)
Quarter: 2024Q2

REPORT INFORMATION
  Report Type: Spontaneous
  Country: US (occurrence: US)
  Receive Date: 20240614
  Receipt Date: 20240614
  Transmission Date: 20240716
  Serious: No
  Sender: FDA-Public Use
  Company Number: US-AMGEN-USASP2024117054

PATIENT
  Age: 87 Year
  Sex: Female

DRUGS (4)
  1. EVENITY [Suspect]
     Active Substance: ROMOSOZUMAB-AQQG
     Indication: Product used for unknown indication
     Dosage: UNK UNK, QMO
     Route: 065
     Dates: start: 202401
  2. COD LIVER OIL [Concomitant]
     Active Substance: COD LIVER OIL
     Dosage: UNK
  3. VITAMIN D [Concomitant]
     Active Substance: VITAMIN D NOS
     Dosage: UNK
  4. VITAMIN B12 [Concomitant]
     Active Substance: CYANOCOBALAMIN
     Indication: Pernicious anaemia
     Dosage: UNK UNK, QMO

REACTIONS (5)
  - Tooth fracture [Unknown]
  - Peripheral swelling [Not Recovered/Not Resolved]
  - Joint swelling [Not Recovered/Not Resolved]
  - Muscle spasms [Unknown]
  - Hypoaesthesia [Unknown]

NARRATIVE: CASE EVENT DATE: 20240101
